FAERS Safety Report 19497585 (Version 1)
Quarter: 2021Q3

REPORT INFORMATION
  Report Type: Spontaneous
  Country: US (occurrence: US)
  Receive Date: 20210706
  Receipt Date: 20210706
  Transmission Date: 20211014
  Serious: No
  Sender: FDA-Public Use
  Company Number: None

PATIENT
  Age: 50 Year
  Sex: Female

DRUGS (1)
  1. REMDESIVIR. [Suspect]
     Active Substance: REMDESIVIR
     Indication: COVID-19
     Dates: start: 20210625, end: 20210627

REACTIONS (3)
  - Wrong technique in product usage process [None]
  - Product selection error [None]
  - Incorrect dose administered [None]

NARRATIVE: CASE EVENT DATE: 20210628
